FAERS Safety Report 6367390-4 (Version None)
Quarter: 2009Q3

REPORT INFORMATION
  Report Type: 
  Country: None (occurrence: None)
  Receive Date: 20090921
  Receipt Date: 20090914
  Transmission Date: 20100115
  Serious: Yes (Hospitalization)
  Sender: FDA-Public Use
  Company Number: A0804073A

PATIENT
  Sex: Female

DRUGS (3)
  1. LAMICTAL [Suspect]
     Indication: COMPLEX PARTIAL SEIZURES
     Dosage: 400MG PER DAY
     Route: 048
     Dates: start: 20010101
  2. LAMOTRIGINE [Suspect]
  3. TEGRETOL [Concomitant]

REACTIONS (6)
  - ADVERSE EVENT [None]
  - BALANCE DISORDER [None]
  - CONVULSION [None]
  - DRUG TOXICITY [None]
  - FEELING DRUNK [None]
  - VISUAL IMPAIRMENT [None]
